FAERS Safety Report 5290294-5 (Version None)
Quarter: 2007Q2

REPORT INFORMATION
  Report Type: 
  Country: None (occurrence: None)
  Receive Date: 20070409
  Receipt Date: 20070402
  Transmission Date: 20071010
  Serious: Yes (Hospitalization, Other)
  Sender: FDA-Public Use
  Company Number: GBWYE948709MAR07

PATIENT
  Age: 56 Year
  Sex: Male

DRUGS (6)
  1. VENLAFAXINE HYDROCHLORIDE [Suspect]
     Indication: DEPRESSION
     Route: 048
     Dates: start: 20061201, end: 20070101
  2. VENLAFAXINE HYDROCHLORIDE [Suspect]
     Route: 048
     Dates: start: 20070101
  3. LITHIUM CARBONATE [Suspect]
     Indication: AFFECTIVE DISORDER
     Route: 048
     Dates: start: 20061201
  4. LITHIUM CARBONATE [Suspect]
     Route: 048
     Dates: end: 20061201
  5. TRYPTOPHAN, L- [Concomitant]
     Dates: start: 20061201
  6. LAMICTAL [Suspect]
     Indication: AFFECTIVE DISORDER
     Route: 048
     Dates: start: 20061101

REACTIONS (3)
  - ATRIAL FLUTTER [None]
  - ATRIOVENTRICULAR BLOCK FIRST DEGREE [None]
  - PYREXIA [None]
